FAERS Safety Report 23980579 (Version 2)
Quarter: 2024Q3

REPORT INFORMATION
  Report Type: Report from Study
  Country: JP (occurrence: JP)
  Receive Date: 20240617
  Receipt Date: 20240703
  Transmission Date: 20241017
  Serious: Yes (Death, Hospitalization)
  Sender: TEVA
  Company Number: JP-TEVA-VS-3208982

PATIENT
  Age: 74 Year
  Sex: Female

DRUGS (1)
  1. PREDNISOLONE [Suspect]
     Active Substance: PREDNISOLONE
     Indication: Pancreatitis acute
     Route: 065

REACTIONS (1)
  - Drug ineffective [Fatal]
